FAERS Safety Report 8075236-1 (Version None)
Quarter: 2012Q1

REPORT INFORMATION
  Report Type: 
  Country: None (occurrence: None)
  Receive Date: 20120127
  Receipt Date: 20120118
  Transmission Date: 20120608
  Serious: Yes (Other)
  Sender: FDA-Public Use
  Company Number: US-JNJFOC-20120100350

PATIENT
  Sex: Female

DRUGS (2)
  1. XARELTO [Suspect]
     Indication: ARTHROSCOPY
     Route: 048
     Dates: start: 20111217, end: 20111228
  2. XARELTO [Suspect]
     Indication: THROMBOSIS PROPHYLAXIS
     Route: 048
     Dates: start: 20111217, end: 20111228

REACTIONS (1)
  - HYPERTENSION [None]
